FAERS Safety Report 4959786-X (Version None)
Quarter: 2006Q1

REPORT INFORMATION
  Report Type: 
  Country: None (occurrence: None)
  Receive Date: 20060331
  Receipt Date: 20060321
  Transmission Date: 20060701
  Serious: Yes (Death)
  Sender: FDA-Public Use
  Company Number: CO-BOEHRINGER INGELHEIM PHARMACEUTICALS, INC.-2006-BP-03172CL

PATIENT
  Age: 63 Year
  Sex: Female
  Weight: 157 kg

DRUGS (4)
  1. SPIRIVA [Suspect]
     Indication: CHRONIC OBSTRUCTIVE PULMONARY DISEASE
     Route: 055
     Dates: start: 20060113
  2. METOPROLOL [Concomitant]
     Indication: HYPERTENSION
     Route: 048
     Dates: start: 20050101
  3. LOVASTATINA [Concomitant]
     Indication: DYSLIPIDAEMIA
     Route: 048
     Dates: start: 20050101
  4. ASPIRIN [Concomitant]
     Indication: DYSLIPIDAEMIA
     Route: 048
     Dates: start: 20050101

REACTIONS (3)
  - CANDIDIASIS [None]
  - CARDIAC FAILURE [None]
  - RESPIRATORY FAILURE [None]
